FAERS Safety Report 8032600-4 (Version None)
Quarter: 2011Q4

REPORT INFORMATION
  Report Type: 
  Country: None (occurrence: None)
  Receive Date: 20111223
  Receipt Date: 20111219
  Transmission Date: 20120403
  Serious: Yes (Hospitalization, Other)
  Sender: FDA-Public Use
  Company Number: 2011SP041921

PATIENT
  Age: 23 Year
  Sex: Female
  Weight: 76.2043 kg

DRUGS (3)
  1. ZOLOFT [Concomitant]
  2. NUVARING [Suspect]
     Indication: CONTRACEPTION
     Dates: start: 20061201, end: 20110101
  3. TRAZODONE HCL [Concomitant]

REACTIONS (22)
  - INCORRECT DRUG ADMINISTRATION DURATION [None]
  - FIBRIN D DIMER INCREASED [None]
  - MAJOR DEPRESSION [None]
  - ATTENTION DEFICIT/HYPERACTIVITY DISORDER [None]
  - ECONOMIC PROBLEM [None]
  - OVARIAN CYST [None]
  - VAGINAL DISCHARGE [None]
  - GENERALISED ANXIETY DISORDER [None]
  - EMOTIONAL DISORDER [None]
  - VULVOVAGINAL PRURITUS [None]
  - ABDOMINAL PAIN LOWER [None]
  - PULMONARY EMBOLISM [None]
  - EXCORIATION [None]
  - MENTAL DISORDER [None]
  - LACERATION [None]
  - HAEMATOCHEZIA [None]
  - CONSTIPATION [None]
  - INTENTIONAL SELF-INJURY [None]
  - PHARYNGEAL CYST [None]
  - SUICIDE ATTEMPT [None]
  - PELVIC PAIN [None]
  - ABNORMAL WITHDRAWAL BLEEDING [None]
